FAERS Safety Report 6046343-X (Version None)
Quarter: 2009Q1

REPORT INFORMATION
  Report Type: 
  Country: None (occurrence: None)
  Receive Date: 20090122
  Receipt Date: 20090115
  Transmission Date: 20090719
  Serious: Yes (Other)
  Sender: FDA-Public Use
  Company Number: FR-AMGEN-US329279

PATIENT
  Sex: Male

DRUGS (11)
  1. ENBREL [Suspect]
     Indication: RHEUMATOID ARTHRITIS
     Route: 058
     Dates: start: 20081201
  2. AMLOR [Concomitant]
     Indication: HYPERTENSION
     Dosage: UNKNOWN
  3. CORTANCYL [Concomitant]
     Indication: RHEUMATOID ARTHRITIS
     Dosage: UNKNOWN
  4. KARDEGIC [Concomitant]
     Dosage: UNKNOWN
  5. SYMBICORT [Concomitant]
     Dosage: UNKNOWN
  6. RAMIPRIL [Concomitant]
     Indication: HYPERTENSION
     Dosage: UNKNOWN
  7. ATENOLOL [Concomitant]
     Indication: HYPERTENSION
     Dosage: UNKNOWN
  8. SIMVASTATIN [Concomitant]
     Dosage: UNKNOWN
  9. FLUDEX [Concomitant]
     Indication: HYPERTENSION
     Dosage: UNKNOWN
  10. METHOTREXATE [Concomitant]
     Indication: RHEUMATOID ARTHRITIS
     Dates: start: 20060101
  11. PLAVIX [Concomitant]
     Dosage: UNKNOWN

REACTIONS (3)
  - CONDITION AGGRAVATED [None]
  - EPISTAXIS [None]
  - HYPERTENSION [None]
